FAERS Safety Report 13748977 (Version 1)
Quarter: 2017Q3

REPORT INFORMATION
  Report Type: Spontaneous
  Country: US (occurrence: US)
  Receive Date: 20170713
  Receipt Date: 20170713
  Transmission Date: 20171127
  Serious: No
  Sender: FDA-Public Use
  Company Number: US-PFIZER INC-2017297321

PATIENT
  Age: 44 Year
  Sex: Female

DRUGS (3)
  1. GABAPENTIN. [Suspect]
     Active Substance: GABAPENTIN
     Dosage: 500 MG, 3X/DAY
  2. METHOTREXATE SODIUM. [Suspect]
     Active Substance: METHOTREXATE SODIUM
     Dosage: 0.9 ML, WEEKLY
  3. SULFASALAZINE. [Suspect]
     Active Substance: SULFASALAZINE
     Dosage: 100 MG, 2X/DAY (2 TABLETS TWICE DAILY)

REACTIONS (16)
  - Myalgia [Unknown]
  - Nasal congestion [Unknown]
  - Back pain [Unknown]
  - Contusion [Unknown]
  - Joint swelling [Unknown]
  - Pyrexia [Unknown]
  - Sinus disorder [Unknown]
  - Myofascial pain syndrome [Unknown]
  - Neck pain [Unknown]
  - Gait disturbance [Unknown]
  - Musculoskeletal pain [Unknown]
  - Arthralgia [Unknown]
  - Pain in extremity [Unknown]
  - Dry eye [Unknown]
  - Fall [Unknown]
  - Joint crepitation [Unknown]
